FAERS Safety Report 9726773 (Version 1)
Quarter: 2013Q4

REPORT INFORMATION
  Report Type: Spontaneous
  Country: TR (occurrence: None)
  Receive Date: 20131129
  Receipt Date: 20131129
  Transmission Date: 20140711
  Serious: Yes (Other)
  Sender: FDA-Public Use
  Company Number: IMP_06895_2013

PATIENT
  Sex: 0

DRUGS (1)
  1. VALPROATE [Suspect]
     Indication: EPILEPSY

REACTIONS (1)
  - Thrombocytopenia [None]
